FAERS Safety Report 9165955 (Version 1)
Quarter: 2013Q1

REPORT INFORMATION
  Report Type: Spontaneous
  Country: US (occurrence: None)
  Receive Date: 20130301
  Receipt Date: 20130301
  Transmission Date: 20140127
  Serious: Yes (Other)
  Sender: FDA-Public Use
  Company Number: 20130059

PATIENT
  Age: 57 Year
  Sex: Female

DRUGS (3)
  1. DEXAMETHASONE SODIUM PHOSPHATE INJECTION, USP (4901-25) 4 MG/ML [Suspect]
     Indication: CONVULSION PROPHYLAXIS
     Dosage: UNKOW DOSE X 10
  2. DEXAMETHASONE SODIUM PHOSPHATE INJECTION, USP (4901-25) 4 MG/ML [Suspect]
     Dosage: UNKOW DOSE X 10
  3. PHENYTOIN SODIUM INJECTION (40042-009-02) 50 [Suspect]
     Indication: CONVULSION PROPHYLAXIS
     Dosage: X 10

REACTIONS (8)
  - Thrombocytopenia [None]
  - Rash generalised [None]
  - Drug interaction [None]
  - Drug hypersensitivity [None]
  - Convulsion [None]
  - Postictal state [None]
  - Unresponsive to stimuli [None]
  - Mental status changes [None]
